FAERS Safety Report 4978104-4 (Version None)
Quarter: 2006Q2

REPORT INFORMATION
  Report Type: 
  Country: None (occurrence: None)
  Receive Date: 20060420
  Receipt Date: 20060202
  Transmission Date: 20061013
  Serious: Yes (Disabling, Other)
  Sender: FDA-Public Use
  Company Number: 2006CG00247

PATIENT
  Age: 88 Year
  Sex: Female
  Weight: 68 kg

DRUGS (6)
  1. XYLOCAINE [Suspect]
     Indication: LOCAL ANAESTHESIA
     Route: 053
     Dates: start: 20050111, end: 20050111
  2. NAROPIN [Suspect]
     Indication: LOCAL ANAESTHESIA
     Route: 053
     Dates: start: 20050111, end: 20050111
  3. MARCAINE [Concomitant]
     Indication: LOCAL ANAESTHESIA
     Route: 053
     Dates: start: 20040101, end: 20040101
  4. XYLOCAINE [Concomitant]
     Route: 053
     Dates: start: 20040101, end: 20040101
  5. MIDAZOLAM HCL [Concomitant]
     Indication: PREMEDICATION
     Dates: start: 20050111, end: 20050111
  6. CEBESENE [Concomitant]
     Route: 047
     Dates: start: 20050111

REACTIONS (3)
  - CORNEAL OEDEMA [None]
  - CORNEAL OPACITY [None]
  - INTRAOCULAR PRESSURE INCREASED [None]
